FAERS Safety Report 8012270-1 (Version None)
Quarter: 2011Q4

REPORT INFORMATION
  Report Type: 
  Country: None (occurrence: None)
  Receive Date: 20111228
  Receipt Date: 20111219
  Transmission Date: 20120403
  Serious: Yes (Other)
  Sender: FDA-Public Use
  Company Number: US-ASTRAZENECA-2011SE76762

PATIENT
  Age: 32 Year
  Sex: Female
  Weight: 90.7 kg

DRUGS (2)
  1. LUMESTA [Concomitant]
  2. SEROQUEL [Suspect]
     Route: 048

REACTIONS (4)
  - BLADDER CANCER [None]
  - ASTHENIA [None]
  - MALAISE [None]
  - INFLUENZA LIKE ILLNESS [None]
